FAERS Safety Report 4972803-6 (Version None)
Quarter: 2006Q2

REPORT INFORMATION
  Report Type: 
  Country: None (occurrence: None)
  Receive Date: 20060414
  Receipt Date: 20060322
  Transmission Date: 20061013
  Serious: Yes (Other)
  Sender: FDA-Public Use
  Company Number: PHBS2006ZA04376

PATIENT
  Age: 49 Year
  Sex: Female

DRUGS (3)
  1. ZELNORM [Suspect]
     Indication: COLITIS ULCERATIVE
     Dosage: 12 MG/DAY
     Route: 048
  2. ADCO-METRONIDAZOLE [Concomitant]
  3. HYOSCINE HBR HYT [Concomitant]

REACTIONS (3)
  - ABDOMINAL PAIN [None]
  - DIVERTICULITIS [None]
  - HAEMATOCHEZIA [None]
